FAERS Safety Report 23424824 (Version 1)
Quarter: 2024Q1

REPORT INFORMATION
  Report Type: Spontaneous
  Country: GB (occurrence: GB)
  Receive Date: 20240121
  Receipt Date: 20240121
  Transmission Date: 20240410
  Serious: Yes (Other)
  Sender: FDA-Public Use
  Company Number: None

PATIENT
  Age: 40 Year
  Sex: Female

DRUGS (4)
  1. OMEPRAZOLE [Suspect]
     Active Substance: OMEPRAZOLE
     Dosage: 2 SEPARATED DOSES
  2. FAMOTIDINE [Concomitant]
     Active Substance: FAMOTIDINE
     Dosage: AT NIGHT
  3. THIAMINE [Concomitant]
     Active Substance: THIAMINE
     Dosage: 3 SEPARATED DOSES
  4. NEFOPAM [Concomitant]
     Active Substance: NEFOPAM
     Dosage: 3 SEPARATED DOSES

REACTIONS (1)
  - Hypomagnesaemia [Unknown]
